FAERS Safety Report 9167826 (Version 1)
Quarter: 2013Q1

REPORT INFORMATION
  Report Type: Spontaneous
  Country: GB (occurrence: None)
  Receive Date: 20130305
  Receipt Date: 20130305
  Transmission Date: 20140127
  Serious: Yes (Disabling)
  Sender: FDA-Public Use
  Company Number: 1614922

PATIENT
  Age: 65 Year
  Sex: Male
  Weight: 37.2 kg

DRUGS (5)
  1. CYTARABINE [Suspect]
     Indication: CENTRAL NERVOUS SYSTEM LYMPHOMA
     Route: 042
     Dates: start: 20130204, end: 20130206
  2. (ACICLOVIR) [Concomitant]
  3. (ALLOPURINOL) [Concomitant]
  4. MEROPENMEM [Concomitant]
  5. (CO-TRIMOXAZOLE) [Concomitant]

REACTIONS (2)
  - Palmar-plantar erythrodysaesthesia syndrome [None]
  - Neuropathy peripheral [None]
